FAERS Safety Report 4975537-7 (Version None)
Quarter: 2006Q2

REPORT INFORMATION
  Report Type: 
  Country: None (occurrence: None)
  Receive Date: 20060410
  Receipt Date: 20060216
  Transmission Date: 20061013
  Serious: Yes (Hospitalization)
  Sender: FDA-Public Use
  Company Number: HU200604000201

PATIENT
  Age: 60 Year
  Sex: Male

DRUGS (2)
  1. HUMULIN N [Suspect]
     Indication: DIABETES MELLITUS
     Dosage: SUBCUTANEOUS
     Route: 058
  2. HP LUXURA, SAPPHIRE BLUE (HUMAPEN LUXURA, SAPPHIRE BLUE) PEN, REUSABLE [Concomitant]

REACTIONS (1)
  - HOSPITALISATION [None]
